FAERS Safety Report 10262606 (Version 1)
Quarter: 2014Q2

REPORT INFORMATION
  Report Type: Spontaneous
  Country: TN (occurrence: TN)
  Receive Date: 20140626
  Receipt Date: 20140626
  Transmission Date: 20141212
  Serious: Yes (Hospitalization, Other)
  Sender: FDA-Public Use
  Company Number: TN-WATSON-2014-14258

PATIENT
  Age: 59 Year
  Sex: Female

DRUGS (3)
  1. CAPTOPRIL (UNKNOWN) [Suspect]
     Indication: HYPERTENSION
     Dosage: UNKNOWN
     Route: 065
  2. ACEBUTOLOL [Concomitant]
     Indication: HYPERTENSION
     Dosage: UNKNOWN
     Route: 065
  3. FUROSEMIDE [Concomitant]
     Indication: HYPERTENSION
     Dosage: UNKNOWN
     Route: 065

REACTIONS (1)
  - Drug reaction with eosinophilia and systemic symptoms [Recovered/Resolved]
